FAERS Safety Report 20767202 (Version 2)
Quarter: 2022Q2

REPORT INFORMATION
  Report Type: Spontaneous
  Country: US (occurrence: US)
  Receive Date: 20220429
  Receipt Date: 20220519
  Transmission Date: 20220721
  Serious: Yes (Other)
  Sender: FDA-Public Use
  Company Number: US-BRISTOL-MYERS SQUIBB COMPANY-2022-029924

PATIENT
  Age: 75 Year
  Sex: Male
  Weight: 98.88 kg

DRUGS (2)
  1. REVLIMID [Suspect]
     Active Substance: LENALIDOMIDE
     Indication: Plasma cell myeloma
     Dosage: 20 MG ORAL, 3 WEEKS 1 WEEK OFF
     Route: 048
     Dates: start: 2021
  2. REVLIMID [Suspect]
     Active Substance: LENALIDOMIDE
     Dosage: DAILY 3 WK ON/1 WK OFF
     Route: 048
     Dates: start: 20220101

REACTIONS (2)
  - Bronchitis [Recovering/Resolving]
  - Atrial fibrillation [Recovered/Resolved]
